FAERS Safety Report 7287491-6 (Version None)
Quarter: 2011Q1

REPORT INFORMATION
  Report Type: 
  Country: None (occurrence: None)
  Receive Date: 20110211
  Receipt Date: 20110203
  Transmission Date: 20110831
  Serious: Yes (Hospitalization, Other)
  Sender: FDA-Public Use
  Company Number: ES-BRISTOL-MYERS SQUIBB COMPANY-15517170

PATIENT
  Age: 71 Year
  Sex: Male

DRUGS (9)
  1. CARVEDILOL [Concomitant]
     Indication: CORONARY ARTERY DISEASE
     Dates: start: 20100907
  2. ENALAPRIL MALEATE [Suspect]
     Indication: HYPERTENSION
     Route: 048
     Dates: start: 20100807, end: 20100919
  3. SEGURIL [Suspect]
     Indication: HYPERTENSION
     Dosage: TABLET
     Route: 048
     Dates: start: 20100714, end: 20100919
  4. PANTOPRAZOLE [Concomitant]
     Dates: start: 20100806
  5. KETOCONAZOLE [Concomitant]
     Dosage: 30GRAM TUBE KETOISDIN CREMA
     Dates: start: 20100824
  6. CARDYL [Concomitant]
     Indication: DYSLIPIDAEMIA
     Dosage: TABLET
     Route: 048
     Dates: start: 20100714
  7. METFORMIN HCL [Suspect]
     Indication: DIABETES MELLITUS
     Dosage: TABLET
     Route: 048
     Dates: start: 20100806, end: 20100919
  8. ADIRO [Suspect]
     Indication: CARDIOVASCULAR EVENT PROPHYLAXIS
     Dosage: ADIRO 100MG TABLET
     Route: 048
     Dates: start: 20100714, end: 20100919
  9. INSPRA [Suspect]
     Indication: HYPERTENSION
     Dosage: TABLET
     Route: 048
     Dates: start: 20100806, end: 20100919

REACTIONS (2)
  - LACTIC ACIDOSIS [None]
  - RENAL TUBULAR NECROSIS [None]
